FAERS Safety Report 7004088-3 (Version None)
Quarter: 2010Q3

REPORT INFORMATION
  Report Type: 
  Country: None (occurrence: None)
  Receive Date: 20100920
  Receipt Date: 20100126
  Transmission Date: 20110219
  Serious: No
  Sender: FDA-Public Use
  Company Number: US-WYE-H13269610

PATIENT
  Sex: Female
  Weight: 79.45 kg

DRUGS (6)
  1. PRISTIQ [Suspect]
     Indication: DEPRESSION
     Route: 048
     Dates: start: 20091201, end: 20100101
  2. PRISTIQ [Suspect]
     Indication: ANXIETY
  3. CLONAZEPAM [Concomitant]
  4. LEVOTHYROXINE SODIUM [Concomitant]
  5. SEROQUEL [Concomitant]
  6. VYTORIN [Concomitant]

REACTIONS (1)
  - DRUG INEFFECTIVE [None]
